FAERS Safety Report 9645293 (Version 1)
Quarter: 2013Q4

REPORT INFORMATION
  Report Type: Spontaneous
  Country: US (occurrence: US)
  Receive Date: 20131025
  Receipt Date: 20131025
  Transmission Date: 20140711
  Serious: Yes (Other)
  Sender: FDA-Public Use
  Company Number: US-FRI-1000050414

PATIENT
  Sex: Female

DRUGS (2)
  1. LEXAPRO [Suspect]
     Dates: start: 2012, end: 2012
  2. PREDNISONE [Concomitant]
     Indication: URTICARIA

REACTIONS (4)
  - Gastrointestinal haemorrhage [Unknown]
  - Intestinal haemorrhage [Unknown]
  - Abdominal pain upper [Unknown]
  - Abdominal discomfort [Unknown]
